FAERS Safety Report 12376051 (Version 1)
Quarter: 2016Q2

REPORT INFORMATION
  Report Type: Spontaneous
  Country: US (occurrence: None)
  Receive Date: 20160516
  Receipt Date: 20160516
  Transmission Date: 20160815
  Serious: Yes (Life-Threatening, Hospitalization, Disabling)
  Sender: FDA-Public Use
  Company Number: None

PATIENT
  Age: 26 Year
  Sex: Female
  Weight: 117.94 kg

DRUGS (2)
  1. QSYMIA [Suspect]
     Active Substance: PHENTERMINE HYDROCHLORIDE\TOPIRAMATE
     Indication: WEIGHT DECREASED
     Dosage: IN THE MORNING TAKEN BY MOUTH
     Route: 048
     Dates: start: 20150409
  2. BIOTIN [Concomitant]
     Active Substance: BIOTIN

REACTIONS (9)
  - Stevens-Johnson syndrome [None]
  - Disease complication [None]
  - Compartment syndrome [None]
  - Renal failure [None]
  - Abdominal compartment syndrome [None]
  - Pneumothorax [None]
  - Multiple organ dysfunction syndrome [None]
  - Dialysis [None]
  - Toxic epidermal necrolysis [None]

NARRATIVE: CASE EVENT DATE: 20150501
